FAERS Safety Report 19177861 (Version 1)
Quarter: 2021Q2

REPORT INFORMATION
  Report Type: Spontaneous
  Country: SE (occurrence: SE)
  Receive Date: 20210426
  Receipt Date: 20210426
  Transmission Date: 20210717
  Serious: Yes (Life-Threatening)
  Sender: FDA-Public Use
  Company Number: SE-JNJFOC-20210437137

PATIENT
  Age: 62 Year
  Sex: Male

DRUGS (3)
  1. CANDESARTAN HIDROCLOROTIAZIDA [Concomitant]
     Active Substance: CANDESARTAN CILEXETIL\HYDROCHLOROTHIAZIDE
     Dosage: 32/12,5 MG X 1
     Dates: start: 2019
  2. XARELTO [Suspect]
     Active Substance: RIVAROXABAN
     Indication: PULMONARY EMBOLISM
     Dosage: 20 MG, QD
     Route: 048
     Dates: start: 20191220, end: 20200515
  3. AMLODIPINE [Concomitant]
     Active Substance: AMLODIPINE BESYLATE
     Dosage: UNK
     Dates: start: 2018

REACTIONS (2)
  - Subdural haematoma [Recovered/Resolved]
  - Subdural hygroma [Recovered/Resolved]

NARRATIVE: CASE EVENT DATE: 20200330
